FAERS Safety Report 10250455 (Version 1)
Quarter: 2014Q2

REPORT INFORMATION
  Report Type: Spontaneous
  Country: GB (occurrence: GB)
  Receive Date: 20140620
  Receipt Date: 20140620
  Transmission Date: 20141212
  Serious: Yes (Life-Threatening, Hospitalization, Disabling, Other)
  Sender: FDA-Public Use
  Company Number: GB-TEVA-489207ISR

PATIENT
  Age: 51 Year
  Sex: Female
  Weight: 53.97 kg

DRUGS (4)
  1. METOCLOPRAMIDE [Suspect]
     Dosage: 6 TAKEN ON 16/05/14 (2 TABLETS 3 X PER DAY) + 2 TAKEN ON 17/05/14. THEN REACTION OCCURRED.
     Route: 048
     Dates: start: 20140516, end: 20140517
  2. SERC [Concomitant]
     Dosage: 48 MILLIGRAM DAILY;
     Route: 048
  3. LEVOTHYROXINE [Concomitant]
     Dosage: 100 MICROGRAM DAILY;
  4. CHEMOTHERAPY NOS [Concomitant]
     Indication: BREAST CANCER
     Dates: start: 20140515

REACTIONS (5)
  - Swollen tongue [Recovered/Resolved]
  - Swelling face [Recovered/Resolved]
  - Pain in jaw [Recovered/Resolved]
  - Inflammation [Recovered/Resolved]
  - Dysarthria [Recovered/Resolved]
